FAERS Safety Report 24139955 (Version 1)
Quarter: 2024Q3

REPORT INFORMATION
  Report Type: Spontaneous
  Country: EU (occurrence: EU)
  Receive Date: 20240726
  Receipt Date: 20240726
  Transmission Date: 20241016
  Serious: Yes (Hospitalization)
  Sender: ETHYPHARM
  Company Number: None

PATIENT

DRUGS (2)
  1. BENZODIAZEPINE [Suspect]
     Active Substance: BENZODIAZEPINE
     Dosage: 16MG/J
     Route: 042
     Dates: end: 20220928
  2. BUPRENORPHINE HYDROCHLORIDE [Suspect]
     Active Substance: BUPRENORPHINE HYDROCHLORIDE
     Dosage: 16MG/J
     Route: 042
     Dates: end: 20220928

REACTIONS (4)
  - Pyrexia [Recovered/Resolved]
  - Drug abuse [Not Recovered/Not Resolved]
  - Injection site necrosis [Recovered/Resolved]
  - Intentional product use issue [Not Recovered/Not Resolved]

NARRATIVE: CASE EVENT DATE: 20221001
